FAERS Safety Report 5391546-0 (Version None)
Quarter: 2007Q3

REPORT INFORMATION
  Report Type: 
  Country: None (occurrence: None)
  Receive Date: 20070719
  Receipt Date: 20070709
  Transmission Date: 20080115
  Serious: Yes (Other)
  Sender: FDA-Public Use
  Company Number: US-PFIZER INC-2007015737

PATIENT
  Sex: Female

DRUGS (14)
  1. CHANTIX [Suspect]
  2. MACROBID [Suspect]
  3. VOLTAREN [Suspect]
  4. AUGMENTIN '125' [Suspect]
  5. NEURONTIN [Concomitant]
     Route: 048
  6. HYDROCHLOROTHIAZIDE [Concomitant]
  7. PEPCID [Concomitant]
  8. MONTELUKAST SODIUM [Concomitant]
  9. MUPIROCIN [Concomitant]
  10. ATROVENT [Concomitant]
  11. ZOLOFT [Concomitant]
  12. ALBUTEROL [Concomitant]
  13. MOTRIN [Concomitant]
  14. CLARITIN [Concomitant]

REACTIONS (25)
  - ABDOMINAL DISTENSION [None]
  - ABDOMINAL PAIN UPPER [None]
  - ABNORMAL DREAMS [None]
  - APPETITE DISORDER [None]
  - ARTHRALGIA [None]
  - BACK PAIN [None]
  - DECREASED ACTIVITY [None]
  - DEHYDRATION [None]
  - DRUG WITHDRAWAL SYNDROME [None]
  - DYSGEUSIA [None]
  - FATIGUE [None]
  - HEADACHE [None]
  - IMPETIGO [None]
  - MALAISE [None]
  - NAUSEA [None]
  - OBSTRUCTIVE AIRWAYS DISORDER [None]
  - POLLAKIURIA [None]
  - POOR QUALITY SLEEP [None]
  - RASH [None]
  - RESTRICTIVE PULMONARY DISEASE [None]
  - SINUSITIS [None]
  - URINARY TRACT INFECTION [None]
  - URINE OUTPUT DECREASED [None]
  - VOMITING [None]
  - WHITE BLOOD CELL COUNT INCREASED [None]
